FAERS Safety Report 22137986 (Version 1)
Quarter: 2023Q1

REPORT INFORMATION
  Report Type: Report from Study
  Country: US (occurrence: US)
  Receive Date: 20230325
  Receipt Date: 20230325
  Transmission Date: 20230417
  Serious: Yes (Hospitalization)
  Sender: FDA-Public Use
  Company Number: US-ABBVIE-4703629

PATIENT
  Age: 46 Year
  Sex: Female

DRUGS (1)
  1. RINVOQ [Suspect]
     Active Substance: UPADACITINIB
     Indication: Psoriatic arthropathy
     Route: 048
     Dates: start: 20230316, end: 20230318

REACTIONS (2)
  - Impaired healing [Not Recovered/Not Resolved]
  - Wound [Not Recovered/Not Resolved]

NARRATIVE: CASE EVENT DATE: 20230301
